FAERS Safety Report 8976220 (Version 1)
Quarter: 2012Q4

REPORT INFORMATION
  Report Type: 
  Country: US (occurrence: US)
  Receive Date: 20121219
  Receipt Date: 20121219
  Transmission Date: 20130627
  Serious: No
  Sender: FDA-Public Use
  Company Number: US-AMGEN-USASP2012065944

PATIENT
  Age: 91 Year
  Sex: Female

DRUGS (9)
  1. PROLIA [Suspect]
     Indication: OSTEOPOROSIS POSTMENOPAUSAL
  2. PRIMIDONE [Concomitant]
  3. SPIRIVA [Concomitant]
  4. ADVAIR [Concomitant]
  5. SINGULAIR [Concomitant]
  6. NEXIUM                             /01479302/ [Concomitant]
  7. DOPAMINE [Concomitant]
  8. OXYGEN [Concomitant]
  9. VITAMIN D /00107901/ [Concomitant]
     Dosage: 50000 IU, UNK

REACTIONS (4)
  - Splenomegaly [Unknown]
  - Hepatomegaly [Unknown]
  - Abdominal pain [Unknown]
  - Abdominal discomfort [Unknown]
